FAERS Safety Report 8491468-2 (Version None)
Quarter: 2012Q3

REPORT INFORMATION
  Report Type: 
  Country: None (occurrence: None)
  Receive Date: 20120706
  Receipt Date: 20120628
  Transmission Date: 20120928
  Serious: Yes (Hospitalization, Other)
  Sender: FDA-Public Use
  Company Number: BR-PFIZER INC-2009190169

PATIENT
  Age: 78 Year
  Sex: Female
  Weight: 67 kg

DRUGS (8)
  1. CAPTOPRIL [Concomitant]
     Indication: HYPERTENSION
  2. AMIODARONE HYDROCHLORIDE [Concomitant]
     Indication: ARRHYTHMIA
  3. INDAPAMIDE [Concomitant]
     Indication: HYPERTENSION
  4. XALATAN [Suspect]
     Indication: GLAUCOMA
     Dosage: 3 UG (1 DROP IN EACH EYE), 1X/DAY
     Route: 047
     Dates: start: 20090101, end: 20110101
  5. AZOPT [Concomitant]
     Dosage: UNK
     Dates: start: 19990101
  6. APRESOLINE [Concomitant]
     Indication: HYPERTENSION
  7. OPTIVE [Concomitant]
     Dosage: UNK
     Dates: start: 20080501
  8. LABYRIN [Concomitant]
     Indication: EAR DISORDER

REACTIONS (14)
  - GASTRITIS [None]
  - GLAUCOMA [None]
  - GALLBLADDER DISORDER [None]
  - PNEUMONIA [None]
  - SKIN DEGENERATIVE DISORDER [None]
  - HEART RATE INCREASED [None]
  - INTESTINAL HAEMORRHAGE [None]
  - CATARACT [None]
  - EYE DISORDER [None]
  - BLISTER [None]
  - VOMITING [None]
  - VISUAL IMPAIRMENT [None]
  - CARDIAC DISORDER [None]
  - EYELID DISORDER [None]
